FAERS Safety Report 8179382-3 (Version None)
Quarter: 2012Q1

REPORT INFORMATION
  Report Type: 
  Country: None (occurrence: None)
  Receive Date: 20120302
  Receipt Date: 20120222
  Transmission Date: 20120608
  Serious: Yes (Other)
  Sender: FDA-Public Use
  Company Number: NL-JNJFOC-20111200341

PATIENT
  Age: 62 Year
  Sex: Female

DRUGS (5)
  1. XEPLION [Suspect]
     Indication: PRODUCT USED FOR UNKNOWN INDICATION
     Route: 030
  2. DEPAKENE [Concomitant]
     Route: 065
  3. SEROQUEL [Concomitant]
     Route: 065
  4. AN UNKNOWN MEDICATION [Concomitant]
     Route: 065
  5. XEPLION [Suspect]
     Route: 030
     Dates: start: 20110801

REACTIONS (1)
  - TOXIC SKIN ERUPTION [None]
